FAERS Safety Report 6366487-2 (Version None)
Quarter: 2009Q3

REPORT INFORMATION
  Report Type: 
  Country: None (occurrence: None)
  Receive Date: 20090921
  Receipt Date: 20090911
  Transmission Date: 20100115
  Serious: Yes (Hospitalization)
  Sender: FDA-Public Use
  Company Number: FR-ROCHE-657186

PATIENT
  Sex: Male
  Weight: 92 kg

DRUGS (1)
  1. NAPROSYN [Suspect]
     Indication: DRUG USE FOR UNKNOWN INDICATION
     Dosage: FREQUENCY: 2 TABLETS DAILY
     Route: 048
     Dates: start: 20090801, end: 20090804

REACTIONS (1)
  - LEUKOCYTOCLASTIC VASCULITIS [None]
